FAERS Safety Report 18600912 (Version 1)
Quarter: 2020Q4

REPORT INFORMATION
  Report Type: Spontaneous
  Country: TW (occurrence: TW)
  Receive Date: 20201210
  Receipt Date: 20201210
  Transmission Date: 20210114
  Serious: Yes (Death, Other)
  Sender: FDA-Public Use
  Company Number: TW-PFIZER INC-2020485479

PATIENT
  Age: 71 Year
  Sex: Female
  Weight: 106.7 kg

DRUGS (8)
  1. ZYVOX [Suspect]
     Active Substance: LINEZOLID
     Dosage: 2 MG/ML, 2X/DAY
     Route: 041
     Dates: start: 20201122, end: 20201129
  2. TARGOCID [Suspect]
     Active Substance: TEICOPLANIN
     Indication: EVIDENCE BASED TREATMENT
     Dosage: 800 MG, 1X/DAY
     Route: 041
     Dates: start: 20201115, end: 20201122
  3. COLISTIN MESILATE SODIUM [Suspect]
     Active Substance: COLISTIMETHATE SODIUM
     Dosage: 2000000.0 U, 3X/DAY
     Route: 055
     Dates: start: 20201118, end: 20201204
  4. FLUCONAZOLE. [Suspect]
     Active Substance: FLUCONAZOLE
     Dosage: 3 DF, 1X/DAY
     Route: 048
     Dates: start: 20201124, end: 20201125
  5. MEPEM [MEROPENEM TRIHYDRATE] [Suspect]
     Active Substance: MEROPENEM
     Dosage: 1000 MG, 3X/DAY
     Route: 041
     Dates: start: 20201115, end: 20201118
  6. CEFEPIME HYDROCHLORIDE. [Suspect]
     Active Substance: CEFEPIME HYDROCHLORIDE
     Dosage: 2000 MG, 3X/DAY
     Route: 041
     Dates: start: 20201118, end: 20201202
  7. CITAO [Suspect]
     Active Substance: CITALOPRAM HYDROBROMIDE
     Dosage: 20 MG, 1X/DAY
     Dates: start: 20201028, end: 20201111
  8. CRAVIT [Suspect]
     Active Substance: LEVOFLOXACIN
     Dosage: 750 MG, 1X/DAY
     Route: 041
     Dates: start: 20201116, end: 20201118

REACTIONS (6)
  - Erythema multiforme [Unknown]
  - Skin necrosis [Unknown]
  - Blister [Unknown]
  - Stevens-Johnson syndrome [Unknown]
  - Multiple organ dysfunction syndrome [Fatal]
  - Dermatitis [Unknown]

NARRATIVE: CASE EVENT DATE: 202011
